FAERS Safety Report 12964078 (Version 1)
Quarter: 2016Q4

REPORT INFORMATION
  Report Type: Other
  Country: US (occurrence: US)
  Receive Date: 20161122
  Receipt Date: 20161122
  Transmission Date: 20170207
  Serious: Yes (Hospitalization)
  Sender: FDA-Public Use
  Company Number: US-ACORDA-ACO_130343_2016

PATIENT
  Age: 80 Year
  Sex: Male

DRUGS (1)
  1. AMPYRA [Suspect]
     Active Substance: DALFAMPRIDINE
     Indication: PULMONARY HYPERTENSION
     Dosage: 10MG, UNK
     Route: 065

REACTIONS (4)
  - Off label use [Unknown]
  - Drug dose omission [Unknown]
  - Blood magnesium decreased [Unknown]
  - Asthenia [Unknown]
